FAERS Safety Report 5594285-6 (Version None)
Quarter: 2008Q1

REPORT INFORMATION
  Report Type: 
  Country: None (occurrence: None)
  Receive Date: 20080117
  Receipt Date: 20080110
  Transmission Date: 20080703
  Serious: Yes (Other)
  Sender: FDA-Public Use
  Company Number: PHEH2008US00710

PATIENT

DRUGS (1)
  1. DIOVAN HCT [Suspect]

REACTIONS (1)
  - ORAL SURGERY [None]
